FAERS Safety Report 25384167 (Version 4)
Quarter: 2025Q3

REPORT INFORMATION
  Report Type: Spontaneous
  Country: AU (occurrence: AU)
  Receive Date: 20250602
  Receipt Date: 20250806
  Transmission Date: 20251021
  Serious: Yes (Hospitalization)
  Sender: NOVARTIS
  Company Number: AU-002147023-NVSC2025AU086640

PATIENT
  Age: 68 Year
  Sex: Male
  Weight: 74 kg

DRUGS (5)
  1. TRAMETINIB [Suspect]
     Active Substance: TRAMETINIB
     Indication: Thyroid cancer
     Dosage: 2 MG, QD
     Route: 048
     Dates: start: 20250512, end: 20250525
  2. TRAMETINIB [Suspect]
     Active Substance: TRAMETINIB
     Route: 065
  3. DABRAFENIB [Suspect]
     Active Substance: DABRAFENIB
     Indication: Thyroid cancer
     Dosage: 150 MG, BID
     Route: 048
     Dates: start: 20250512, end: 20250525
  4. DABRAFENIB [Suspect]
     Active Substance: DABRAFENIB
     Route: 065
  5. Coloxyl [Concomitant]
     Indication: Constipation
     Dosage: UNK, BID (1-2 TAB,BD PRN)
     Route: 048
     Dates: start: 20250515

REACTIONS (10)
  - Syncope [Recovered/Resolved]
  - Hyponatraemia [Recovering/Resolving]
  - Liver function test abnormal [Unknown]
  - Pyrexia [Recovered/Resolved]
  - Dizziness [Recovered/Resolved]
  - Hypotension [Recovered/Resolved]
  - Blood alkaline phosphatase increased [Recovering/Resolving]
  - Gamma-glutamyltransferase increased [Recovering/Resolving]
  - Blood lactate dehydrogenase increased [Recovering/Resolving]
  - Orthostatic hypotension [Unknown]

NARRATIVE: CASE EVENT DATE: 20250524
